FAERS Safety Report 11457863 (Version 2)
Quarter: 2015Q4

REPORT INFORMATION
  Report Type: Report from Study
  Country: US (occurrence: US)
  Receive Date: 20150904
  Receipt Date: 20151109
  Transmission Date: 20160304
  Serious: Yes (Hospitalization, Other)
  Sender: FDA-Public Use
  Company Number: US-BAYER-2015-185132

PATIENT
  Age: 67 Year
  Sex: Female

DRUGS (3)
  1. NEXAVAR [Suspect]
     Active Substance: SORAFENIB
     Dosage: 200 MG, BID
     Route: 048
     Dates: start: 2015, end: 2015
  2. NEXAVAR [Suspect]
     Active Substance: SORAFENIB
     Dosage: 400 MG, BID
     Route: 048
     Dates: start: 20150301, end: 2015
  3. NEXAVAR [Suspect]
     Active Substance: SORAFENIB
     Dosage: 400 MG, BID ON EMPTY STOMACH
     Route: 048
     Dates: start: 20150424, end: 20150626

REACTIONS (4)
  - Disease progression [Not Recovered/Not Resolved]
  - Peripheral swelling [Not Recovered/Not Resolved]
  - Diarrhoea [Recovered/Resolved]
  - Drug ineffective [None]

NARRATIVE: CASE EVENT DATE: 20150424
